FAERS Safety Report 23310435 (Version 1)
Quarter: 2023Q4

REPORT INFORMATION
  Report Type: Spontaneous
  Country: CN (occurrence: CN)
  Receive Date: 20231218
  Receipt Date: 20231218
  Transmission Date: 20240110
  Serious: Yes (Other)
  Sender: FDA-Public Use
  Company Number: CN-009507513-2312CHN004724

PATIENT
  Age: 53 Year
  Sex: Female

DRUGS (3)
  1. CILASTATIN SODIUM\IMIPENEM [Suspect]
     Active Substance: CILASTATIN SODIUM\IMIPENEM
     Indication: Pyrexia
     Dosage: 1 G, Q8H
     Route: 041
     Dates: start: 20231012, end: 20231015
  2. CILASTATIN SODIUM\IMIPENEM [Suspect]
     Active Substance: CILASTATIN SODIUM\IMIPENEM
     Indication: Granulocyte count decreased
  3. MEROPENEM [Concomitant]
     Active Substance: MEROPENEM

REACTIONS (2)
  - Hallucination [Recovering/Resolving]
  - Mental disorder [Recovered/Resolved]

NARRATIVE: CASE EVENT DATE: 20231014
